FAERS Safety Report 25602568 (Version 2)
Quarter: 2025Q3

REPORT INFORMATION
  Report Type: Spontaneous
  Country: EU (occurrence: EU)
  Receive Date: 20250724
  Receipt Date: 20250908
  Transmission Date: 20251020
  Serious: Yes (Hospitalization)
  Sender: TAIHO ONCOLOGY INC
  Company Number: EU-MMM-Otsuka-USBLEKCI

PATIENT
  Age: 84 Year
  Sex: Male

DRUGS (1)
  1. INQOVI [Suspect]
     Active Substance: CEDAZURIDINE\DECITABINE
     Indication: Acute myeloid leukaemia
     Route: 048
     Dates: start: 202501

REACTIONS (2)
  - Escherichia bacteraemia [Recovered/Resolved]
  - Neutropenia [Recovered/Resolved]
